FAERS Safety Report 24868398 (Version 1)
Quarter: 2025Q1

REPORT INFORMATION
  Report Type: Spontaneous
  Country: CA (occurrence: CA)
  Receive Date: 20250121
  Receipt Date: 20250121
  Transmission Date: 20250408
  Serious: Yes (Life-Threatening, Hospitalization, Other)
  Sender: PFIZER
  Company Number: CA-PFIZER INC-202500010983

PATIENT
  Age: 12 Year
  Sex: Female
  Weight: 51 kg

DRUGS (4)
  1. CYTARABINE [Suspect]
     Active Substance: CYTARABINE
     Dosage: 1500 MG, EVERY 12 HOURS
     Route: 042
  2. ETOPOSIDE [Suspect]
     Active Substance: ETOPOSIDE
     Route: 042
  3. HYDROCORTISONE [Concomitant]
     Active Substance: HYDROCORTISONE
  4. METHOTREXATE [Concomitant]
     Active Substance: METHOTREXATE
     Route: 037

REACTIONS (1)
  - Aplastic anaemia [Recovered/Resolved]
